FAERS Safety Report 25198446 (Version 1)
Quarter: 2025Q2

REPORT INFORMATION
  Report Type: Spontaneous
  Country: US (occurrence: None)
  Receive Date: 20250414
  Receipt Date: 20250414
  Transmission Date: 20250716
  Serious: No
  Sender: FDA-CTU
  Company Number: None

PATIENT
  Age: 77 Year
  Sex: Female
  Weight: 64.86 kg

DRUGS (1)
  1. FORTEO [Suspect]
     Active Substance: TERIPARATIDE
     Indication: Osteoporosis
     Dosage: ?INJECT 20MCG (0.08ML)  SUBCUTANEOUSLY DAILY AS DIRECTED
     Route: 058
     Dates: start: 202311

REACTIONS (1)
  - Arrhythmia [None]
